FAERS Safety Report 17297574 (Version 1)
Quarter: 2020Q1

REPORT INFORMATION
  Report Type: Spontaneous
  Country: US (occurrence: US)
  Receive Date: 20200122
  Receipt Date: 20200122
  Transmission Date: 20200409
  Serious: Yes (Hospitalization)
  Sender: FDA-Public Use
  Company Number: US-CELGENEUS-USA-20200106294

PATIENT
  Sex: Female
  Weight: 61.29 kg

DRUGS (1)
  1. POMALYST [Suspect]
     Active Substance: POMALIDOMIDE
     Indication: PLASMA CELL MYELOMA
     Dosage: 3 MILLIGRAM
     Route: 048
     Dates: start: 201909

REACTIONS (4)
  - Nasopharyngitis [Unknown]
  - Febrile neutropenia [Unknown]
  - Depressed mood [Unknown]
  - Ear infection [Unknown]

NARRATIVE: CASE EVENT DATE: 2019
